FAERS Safety Report 8908512 (Version 1)
Quarter: 2012Q4

REPORT INFORMATION
  Report Type: 
  Country: US (occurrence: US)
  Receive Date: 20121114
  Receipt Date: 20121114
  Transmission Date: 20130627
  Serious: Yes (Hospitalization, Other)
  Sender: FDA-Public Use
  Company Number: CHPA2012US023527

PATIENT
  Age: 70 Year
  Sex: Female

DRUGS (2)
  1. VOLTAREN GEL [Suspect]
     Indication: KNEE ARTHROPLASTY
     Dosage: Unk, Unk
     Route: 061
     Dates: start: 201012
  2. COPAXONE [Concomitant]
     Indication: MULTIPLE SCLEROSIS
     Dosage: 20 mg, once a day

REACTIONS (11)
  - Multiple sclerosis [Not Recovered/Not Resolved]
  - Swollen tongue [Unknown]
  - Fibromyalgia [Unknown]
  - Pharyngeal oedema [Recovered/Resolved]
  - Tongue paralysis [Recovered/Resolved]
  - Fall [Unknown]
  - Motor dysfunction [Unknown]
  - Abasia [Unknown]
  - Balance disorder [Not Recovered/Not Resolved]
  - Central nervous system lesion [Not Recovered/Not Resolved]
  - Off label use [Unknown]
